FAERS Safety Report 14293486 (Version 6)
Quarter: 2019Q4

REPORT INFORMATION
  Report Type: Spontaneous
  Country: CA (occurrence: CA)
  Receive Date: 20171215
  Receipt Date: 20191020
  Transmission Date: 20200122
  Serious: Yes (Hospitalization, Other)
  Sender: FDA-Public Use
  Company Number: CA-009507513-1412CAN011428

PATIENT
  Age: 64 Year
  Sex: Female

DRUGS (3)
  1. EZETROL [Suspect]
     Active Substance: EZETIMIBE
     Indication: HYPERCHOLESTEROLAEMIA
  2. WARFARIN [Concomitant]
     Active Substance: WARFARIN
  3. EZETROL [Suspect]
     Active Substance: EZETIMIBE
     Indication: TYPE IIA HYPERLIPIDAEMIA
     Dosage: DOSE: 10 MILLIGRAM, DAILY (QD)
     Route: 048
     Dates: start: 200806

REACTIONS (13)
  - Pulmonary embolism [Recovering/Resolving]
  - Bronchiectasis [Recovering/Resolving]
  - Haemoglobin decreased [Recovering/Resolving]
  - Fall [Recovering/Resolving]
  - Pneumonia [Unknown]
  - Appendicitis [Recovering/Resolving]
  - Haematochezia [Recovering/Resolving]
  - Haemorrhage [Recovering/Resolving]
  - Fatigue [Recovering/Resolving]
  - Lesion excision [Recovering/Resolving]
  - Pneumonia [Recovering/Resolving]
  - Malaise [Unknown]
  - Dyspnoea [Recovering/Resolving]

NARRATIVE: CASE EVENT DATE: 201711
